FAERS Safety Report 24449179 (Version 2)
Quarter: 2025Q1

REPORT INFORMATION
  Report Type: Report from Study
  Country: US (occurrence: US)
  Receive Date: 20241017
  Receipt Date: 20250110
  Transmission Date: 20250408
  Serious: Yes (Hospitalization)
  Sender: AMGEN
  Company Number: US-AMGEN-USASP2024204114

PATIENT
  Sex: Male

DRUGS (2)
  1. PROCYSBI [Suspect]
     Active Substance: CYSTEAMINE BITARTRATE
     Indication: Cystinosis
     Dosage: 1875 MILLIGRAM, QD (TAKE 900 MG (12 X 75MG CAPSULES) ORALLY EVERY MORNING AND TAKE 975 MG (13 X 75 M
     Route: 048
     Dates: start: 20230622
  2. PROCYSBI [Suspect]
     Active Substance: CYSTEAMINE BITARTRATE
     Route: 048

REACTIONS (2)
  - Hospitalisation [Unknown]
  - White coat hypertension [Recovered/Resolved]
